FAERS Safety Report 8515339-8 (Version None)
Quarter: 2012Q3

REPORT INFORMATION
  Report Type: 
  Country: None (occurrence: None)
  Receive Date: 20120717
  Receipt Date: 20120706
  Transmission Date: 20120928
  Serious: Yes (Other)
  Sender: FDA-Public Use
  Company Number: JP-VERTEX PHARMACEUTICALS INC.-AE-2012-010181

PATIENT
  Age: 59 Year
  Sex: Female

DRUGS (7)
  1. TELAVIC (TELAPREVIR) [Suspect]
     Indication: HEPATITIS C
     Route: 048
     Dates: start: 20120515, end: 20120605
  2. TELAVIC (TELAPREVIR) [Suspect]
     Route: 048
     Dates: start: 20120606, end: 20120626
  3. OLOPATADINE HCL [Concomitant]
     Route: 048
     Dates: start: 20120515, end: 20120626
  4. REBETOL [Concomitant]
     Route: 048
     Dates: start: 20120613, end: 20120626
  5. RIKKUNSHITO [Concomitant]
     Route: 048
     Dates: start: 20120515, end: 20120626
  6. REBETOL [Concomitant]
     Indication: HEPATITIS C
     Route: 048
     Dates: start: 20120515, end: 20120612
  7. PEG-INTRON [Concomitant]
     Indication: HEPATITIS C
     Route: 058
     Dates: start: 20120515, end: 20120620

REACTIONS (1)
  - RETINOPATHY [None]
